FAERS Safety Report 15310114 (Version 4)
Quarter: 2019Q1

REPORT INFORMATION
  Report Type: Spontaneous
  Country: US (occurrence: US)
  Receive Date: 20180823
  Receipt Date: 20190221
  Transmission Date: 20190417
  Serious: No
  Sender: FDA-Public Use
  Company Number: US-PFIZER INC-2018336344

PATIENT
  Age: 58 Year
  Sex: Female

DRUGS (1)
  1. ESTRADIOL. [Suspect]
     Active Substance: ESTRADIOL
     Indication: HOT FLUSH
     Dosage: 1 MG, DAILY
     Route: 048
     Dates: start: 2018, end: 2018

REACTIONS (9)
  - Dry eye [Recovering/Resolving]
  - Asthenia [Recovered/Resolved]
  - Weight increased [Unknown]
  - Irritability [Recovering/Resolving]
  - Fatigue [Unknown]
  - Impaired quality of life [Unknown]
  - Libido decreased [Unknown]
  - Hot flush [Recovering/Resolving]
  - Vulvovaginal dryness [Unknown]
